FAERS Safety Report 4442316-9 (Version None)
Quarter: 2004Q3

REPORT INFORMATION
  Report Type: 
  Country: None (occurrence: None)
  Receive Date: 20040903
  Receipt Date: 20040715
  Transmission Date: 20050211
  Serious: Yes (Other)
  Sender: FDA-Public Use
  Company Number: 2004UW14645

PATIENT
  Age: 67 Year
  Sex: Male
  Weight: 121.564 kg

DRUGS (5)
  1. CRESTOR [Suspect]
     Dosage: 10 MG PO
     Route: 048
  2. GLIPIZIDE [Concomitant]
  3. LOPRESSOR [Concomitant]
  4. METOPROLO [Concomitant]
  5. WARFARIN SODIUM [Concomitant]

REACTIONS (2)
  - OEDEMA PERIPHERAL [None]
  - RENAL DISORDER [None]
